FAERS Safety Report 6521655-1 (Version None)
Quarter: 2009Q4

REPORT INFORMATION
  Report Type: 
  Country: None (occurrence: None)
  Receive Date: 20091214
  Receipt Date: 20090707
  Transmission Date: 20100525
  Serious: Yes (Other)
  Sender: FDA-Public Use
  Company Number: 642674

PATIENT
  Age: 51 Year
  Sex: Female
  Weight: 95.3 kg

DRUGS (3)
  1. PEGASYS [Suspect]
     Indication: HEPATITIS C
     Dosage: 180 UG 1 PER WEEK SUBCUTANEOUS
     Route: 058
     Dates: start: 20090131, end: 20090707
  2. RIBASPHERE [Suspect]
     Indication: HEPATITIS C
     Dosage: 700 MG 2 PER DAY ORAL
     Route: 048
     Dates: start: 20090131, end: 20090707
  3. PROZAC [Suspect]
     Indication: DEPRESSION

REACTIONS (15)
  - ABASIA [None]
  - ALOPECIA [None]
  - ANXIETY [None]
  - ARTHRALGIA [None]
  - ASTHENIA [None]
  - DEPRESSION [None]
  - DYSPNOEA [None]
  - FATIGUE [None]
  - HYPERHIDROSIS [None]
  - HYPOTHYROIDISM [None]
  - JOINT SWELLING [None]
  - MUSCULAR WEAKNESS [None]
  - PALPITATIONS [None]
  - SUICIDAL IDEATION [None]
  - TREMOR [None]
